FAERS Safety Report 7568818-4 (Version None)
Quarter: 2011Q2

REPORT INFORMATION
  Report Type: 
  Country: None (occurrence: None)
  Receive Date: 20110623
  Receipt Date: 20110617
  Transmission Date: 20111010
  Serious: Yes (Hospitalization)
  Sender: FDA-Public Use
  Company Number: SE-PFIZER INC-2009185640

PATIENT
  Age: 60 Year
  Sex: Male
  Weight: 113 kg

DRUGS (9)
  1. BRICANYL [Concomitant]
     Dosage: UNK
     Route: 048
     Dates: start: 20030101
  2. FORMOTEROL FUMARATE [Concomitant]
     Dosage: UNK
     Route: 048
     Dates: start: 20030101
  3. DIGOXIN [Concomitant]
     Dosage: UNK
     Route: 048
     Dates: start: 20070426
  4. ENALAPRIL [Concomitant]
     Dosage: UNK
     Route: 048
     Dates: start: 20070822, end: 20090311
  5. FUROSEMIDE [Concomitant]
     Dosage: UNK
     Route: 048
     Dates: start: 20071022, end: 20090311
  6. BISOPROLOL [Concomitant]
     Dosage: UNK
     Route: 048
     Dates: start: 20071201
  7. SPIRIVA [Concomitant]
     Dosage: UNK
     Route: 048
     Dates: start: 20070101
  8. BUDESONIDE [Concomitant]
     Dosage: UNK
     Route: 048
     Dates: start: 20030101
  9. EPLERENONE [Suspect]
     Indication: CARDIAC FAILURE CHRONIC
     Dosage: 25 MG, DAILY
     Route: 048
     Dates: start: 20070508, end: 20100923

REACTIONS (1)
  - SYNCOPE [None]
